FAERS Safety Report 17315951 (Version 1)
Quarter: 2020Q1

REPORT INFORMATION
  Report Type: Spontaneous
  Country: JP (occurrence: JP)
  Receive Date: 20200124
  Receipt Date: 20200124
  Transmission Date: 20200409
  Serious: Yes (Other)
  Sender: FDA-Public Use
  Company Number: JP-ASTRAZENECA-2020SE10462

PATIENT
  Age: 65 Year

DRUGS (1)
  1. LYNPARZA [Suspect]
     Active Substance: OLAPARIB
     Indication: OVARIAN CANCER
     Dosage: 150.0MG UNKNOWN
     Route: 048
     Dates: start: 20190403, end: 20190626

REACTIONS (2)
  - Lung disorder [Unknown]
  - Vasculitis [Unknown]

NARRATIVE: CASE EVENT DATE: 20190626
